FAERS Safety Report 8540128-8 (Version None)
Quarter: 2012Q3

REPORT INFORMATION
  Report Type: 
  Country: None (occurrence: None)
  Receive Date: 20120713
  Receipt Date: 20120702
  Transmission Date: 20120928
  Serious: Yes (Other)
  Sender: FDA-Public Use
  Company Number: JP-2012-15632

PATIENT
  Age: 4 Year
  Sex: Male
  Weight: 13.6 kg

DRUGS (4)
  1. POTASSIUM SPARING DIURETICS (POTASSIUM SPARING DIURETICS) [Concomitant]
  2. LOOP DIURETICS (LOOP DIURETICS) [Concomitant]
  3. THIAZIDE DIURETICS (THIAZIDE DIURETICS) [Concomitant]
  4. SAMSCA [Suspect]
     Dosage: 0.1 MG/KG, QD, ORAL, 0.2 MG/KG, QD, ORAL, 0.4 MG/KG, QD, ORAL
     Route: 048

REACTIONS (2)
  - CONTINUOUS HAEMODIAFILTRATION [None]
  - OLIGURIA [None]
